FAERS Safety Report 8392425-7 (Version None)
Quarter: 2012Q2

REPORT INFORMATION
  Report Type: 
  Country: None (occurrence: None)
  Receive Date: 20120529
  Receipt Date: 20120518
  Transmission Date: 20120825
  Serious: Yes (Hospitalization)
  Sender: FDA-Public Use
  Company Number: IT-BRISTOL-MYERS SQUIBB COMPANY-16619082

PATIENT

DRUGS (3)
  1. FENTANYL-100 [Concomitant]
     Route: 062
     Dates: start: 20111003, end: 20120110
  2. ERBITUX [Suspect]
     Indication: HEAD AND NECK CANCER
     Dosage: LAST DOSE ON 20DEC11,77 DAYS
     Route: 042
     Dates: start: 20111004
  3. METOCLOPRAMIDE [Concomitant]
     Route: 048
     Dates: start: 20111003, end: 20120126

REACTIONS (4)
  - DYSPNOEA [None]
  - CLONUS [None]
  - PAIN [None]
  - PNEUMONIA ASPIRATION [None]
